FAERS Safety Report 18123332 (Version 1)
Quarter: 2020Q3

REPORT INFORMATION
  Report Type: Spontaneous
  Country: US (occurrence: US)
  Receive Date: 20200807
  Receipt Date: 20200807
  Transmission Date: 20201103
  Serious: No
  Sender: FDA-Public Use
  Company Number: US-SUNOVION-2020SUN002223

PATIENT
  Sex: Male
  Weight: 122 kg

DRUGS (3)
  1. LAMICTAL [Concomitant]
     Active Substance: LAMOTRIGINE
     Dosage: 150 MG
  2. LATUDA [Suspect]
     Active Substance: LURASIDONE HYDROCHLORIDE
     Indication: BIPOLAR DISORDER
     Dosage: 40 MG, QD
     Route: 048
     Dates: start: 20200722
  3. LATUDA [Suspect]
     Active Substance: LURASIDONE HYDROCHLORIDE
     Dosage: 20 MG
     Route: 048

REACTIONS (3)
  - Depression [Not Recovered/Not Resolved]
  - Feeling cold [Unknown]
  - Anxiety [Unknown]
